FAERS Safety Report 21562611 (Version 5)
Quarter: 2023Q1

REPORT INFORMATION
  Report Type: Report from Study
  Country: JP (occurrence: JP)
  Receive Date: 20221107
  Receipt Date: 20230207
  Transmission Date: 20230417
  Serious: Yes (Death, Life-Threatening, Hospitalization)
  Sender: FDA-Public Use
  Company Number: JP-JNJFOC-20221058899

PATIENT
  Age: 68 Year
  Sex: Female
  Weight: 53.1 kg

DRUGS (26)
  1. TECLISTAMAB [Suspect]
     Active Substance: TECLISTAMAB
     Indication: Plasma cell myeloma
     Dosage: MOST RECENT DOSE ON14-DEC-2022, MEDICATION KIT NUMBER 380189
     Route: 058
     Dates: start: 20221004
  2. TECLISTAMAB [Suspect]
     Active Substance: TECLISTAMAB
     Route: 058
     Dates: start: 20221007
  3. TECLISTAMAB [Suspect]
     Active Substance: TECLISTAMAB
     Route: 058
     Dates: start: 20221011
  4. VONOPRAZAN [Concomitant]
     Active Substance: VONOPRAZAN
     Indication: Oesophagitis
     Route: 048
  5. METHYLCOBALAMIN [Concomitant]
     Active Substance: METHYLCOBALAMIN
     Indication: Neuropathy peripheral
     Route: 048
  6. ACYCLOVIR [Concomitant]
     Active Substance: ACYCLOVIR
     Indication: Herpes zoster
     Route: 048
  7. BERLOCOMBIN [Concomitant]
     Indication: Prophylaxis
     Route: 048
  8. PREGABALIN [Concomitant]
     Active Substance: PREGABALIN
     Indication: Neuropathy peripheral
     Route: 048
  9. DULOXETINE HYDROCHLORIDE [Concomitant]
     Active Substance: DULOXETINE HYDROCHLORIDE
     Indication: Neuropathy peripheral
     Route: 048
  10. ALENDRONATE SODIUM [Concomitant]
     Active Substance: ALENDRONATE SODIUM
     Indication: Osteoporosis
  11. MAGNESIUM OXIDE [Concomitant]
     Active Substance: MAGNESIUM OXIDE
     Indication: Constipation
     Route: 048
  12. DARBEPOETIN ALFA [Concomitant]
     Active Substance: DARBEPOETIN ALFA
     Indication: Anaemia
     Route: 042
     Dates: start: 20220914, end: 20221026
  13. MOCOUGH [Concomitant]
     Indication: Nasopharyngitis
     Route: 048
     Dates: start: 20220926, end: 20221013
  14. ESZOPICLONE [Concomitant]
     Active Substance: ESZOPICLONE
     Indication: Insomnia
     Route: 048
     Dates: start: 20221003, end: 20221004
  15. ACETAMINOPHEN [Concomitant]
     Active Substance: ACETAMINOPHEN
     Indication: Nasopharyngitis
     Route: 048
     Dates: start: 20221005
  16. FEBUXOSTAT [Concomitant]
     Active Substance: FEBUXOSTAT
     Indication: Hyperuricaemia
     Route: 048
     Dates: start: 20221012
  17. RUPATADINE FUMARATE [Concomitant]
     Active Substance: RUPATADINE FUMARATE
     Indication: Nasopharyngitis
     Route: 048
     Dates: start: 20221003, end: 20221108
  18. BUTYRIC ACID [Concomitant]
     Active Substance: BUTYRIC ACID
     Indication: Constipation
     Dates: start: 20221107
  19. SULFAMETHIZOLE\TRIMETHOPRIM [Concomitant]
     Active Substance: SULFAMETHIZOLE\TRIMETHOPRIM
     Indication: Pneumonia
     Route: 048
  20. VENIRON [Concomitant]
     Indication: Hypoglobulinaemia
     Route: 042
     Dates: start: 20221111, end: 20221111
  21. FURSULTIAMINE HYDROCHLORIDE [Concomitant]
     Active Substance: FURSULTIAMINE HYDROCHLORIDE
     Indication: Vitamin B1 deficiency
     Route: 042
     Dates: start: 20221110, end: 20221114
  22. FURSULTIAMINE HYDROCHLORIDE [Concomitant]
     Active Substance: FURSULTIAMINE HYDROCHLORIDE
     Route: 048
     Dates: start: 20221105, end: 20221111
  23. VALGANCICLOVIR HYDROCHLORIDE [Concomitant]
     Active Substance: VALGANCICLOVIR HYDROCHLORIDE
     Indication: Cytomegalovirus infection
     Route: 048
     Dates: start: 20221214, end: 20221217
  24. FUROSEMIDE [Concomitant]
     Active Substance: FUROSEMIDE
     Indication: Oedema
     Route: 042
     Dates: start: 20221122, end: 20221217
  25. SOLITA-T1 [Concomitant]
     Indication: Oedema
     Route: 042
     Dates: start: 20221123, end: 20221217
  26. VITAMEDIN [BENFOTIAMINE;CYANOCOBALAMIN;PYRIDOXINE HYDROCHLORIDE] [Concomitant]
     Indication: Vitamin B1 deficiency
     Route: 042
     Dates: start: 20221123, end: 20221217

REACTIONS (3)
  - Myelosuppression [Not Recovered/Not Resolved]
  - Adrenal insufficiency [Fatal]
  - Bacteraemia [Recovered/Resolved]

NARRATIVE: CASE EVENT DATE: 20221025
